FAERS Safety Report 8817476 (Version 1)
Quarter: 2012Q4

REPORT INFORMATION
  Report Type: 
  Country: ZA (occurrence: ZA)
  Receive Date: 20121001
  Receipt Date: 20121001
  Transmission Date: 20130627
  Serious: Yes (Hospitalization)
  Sender: FDA-Public Use
  Company Number: ZA-ASTRAZENECA-2012SE73769

PATIENT
  Age: 3 Month
  Sex: Female

DRUGS (5)
  1. NEXIUM [Suspect]
     Indication: GASTROOESOPHAGEAL REFLUX DISEASE
     Dosage: HALF SACHET TWICE DAILY
     Route: 048
     Dates: start: 20120720
  2. NEXIUM [Suspect]
     Indication: GASTROOESOPHAGEAL REFLUX DISEASE
     Dosage: ONE SACHET TWICE DAILY
     Route: 048
     Dates: start: 20120803
  3. NEXIUM [Suspect]
     Indication: GASTROOESOPHAGEAL REFLUX DISEASE
     Dosage: HALF SACHET TWICE DAILY
     Route: 048
  4. NEOCATE [Concomitant]
  5. SIMILAC [Concomitant]

REACTIONS (9)
  - Diarrhoea [Recovered/Resolved]
  - Shigella infection [None]
  - Urinary tract infection [Unknown]
  - Gastrooesophageal reflux disease [Unknown]
  - Off label use [Unknown]
  - Escherichia test positive [None]
  - Rotavirus test positive [None]
  - Nosocomial infection [None]
  - Off label use [None]
